FAERS Safety Report 20870258 (Version 1)
Quarter: 2022Q2

REPORT INFORMATION
  Report Type: Report from Study
  Country: FR (occurrence: FR)
  Receive Date: 20220525
  Receipt Date: 20220525
  Transmission Date: 20220721
  Serious: Yes (Other)
  Sender: FDA-Public Use
  Company Number: FR-SUN PHARMACEUTICAL INDUSTRIES LTD-2022R1-338005

PATIENT
  Age: 29 Year
  Sex: Female

DRUGS (1)
  1. NICARDIPINE [Suspect]
     Active Substance: NICARDIPINE
     Indication: Phaeochromocytoma
     Dosage: UNK
     Route: 065

REACTIONS (7)
  - Exposure during pregnancy [Unknown]
  - Premature delivery [Unknown]
  - Condition aggravated [Unknown]
  - Haemodynamic instability [Unknown]
  - Cardiogenic shock [Recovered/Resolved]
  - Blood pressure abnormal [Recovering/Resolving]
  - Left ventricular failure [Recovered/Resolved]
